FAERS Safety Report 16699602 (Version 1)
Quarter: 2019Q3

REPORT INFORMATION
  Report Type: Spontaneous
  Country: US (occurrence: US)
  Receive Date: 20190813
  Receipt Date: 20190813
  Transmission Date: 20191004
  Serious: No
  Sender: FDA-Public Use
  Company Number: US-ASSERTIO THERAPEUTICS, INC.-US-2019DEP000052

PATIENT
  Sex: Female

DRUGS (2)
  1. CAMBIA [Suspect]
     Active Substance: DICLOFENAC POTASSIUM
     Dosage: UNK, (1-2 A DAY IN 6 DAYS)
     Route: 048
  2. CAMBIA [Suspect]
     Active Substance: DICLOFENAC POTASSIUM
     Indication: PRODUCT USED FOR UNKNOWN INDICATION
     Dosage: UNK, (MIX ONE PACKET WITH 1-2 OUNCE OF WATER DRINKS IMMEDIATELY AS A SINGLE DOSE DAILY AS NEEDED.)
     Route: 048
     Dates: start: 20181130

REACTIONS (4)
  - Flatulence [Recovered/Resolved]
  - Intentional product use issue [Unknown]
  - Abdominal distension [Recovered/Resolved]
  - Abdominal pain [Recovered/Resolved]
